FAERS Safety Report 13887523 (Version 2)
Quarter: 2017Q4

REPORT INFORMATION
  Report Type: Spontaneous
  Country: US (occurrence: US)
  Receive Date: 20170821
  Receipt Date: 20171004
  Transmission Date: 20180320
  Serious: Yes (Hospitalization, Other)
  Sender: FDA-Public Use
  Company Number: US-FRESENIUS MEDICAL CARE RENAL THERAPIES GROUP-FMC-1707-000805

PATIENT
  Age: 47 Year
  Sex: Female
  Weight: 47.5 kg

DRUGS (12)
  1. ACETAMINIOPHEN-OXYCODONE [Concomitant]
     Dosage: 5/325MG EVERY 6 HOURS
     Route: 048
  2. AURYXIA [Concomitant]
     Active Substance: TETRAFERRIC TRICITRATE DECAHYDRATE
     Route: 048
  3. GENTAMYCIN [Concomitant]
     Active Substance: GENTAMICIN
     Route: 061
  4. METOPROLOL. [Concomitant]
     Active Substance: METOPROLOL
     Route: 048
  5. POTASSIUM CHLORIDE. [Concomitant]
     Active Substance: POTASSIUM CHLORIDE
     Route: 048
  6. DELFLEX [Suspect]
     Active Substance: CALCIUM CHLORIDE\DEXTROSE\MAGNESIUM CHLORIDE\SODIUM CHLORIDE\SODIUM LACTATE
     Indication: END STAGE RENAL DISEASE
     Route: 033
     Dates: start: 200409
  7. AMLODIPINE [Concomitant]
     Active Substance: AMLODIPINE BESYLATE
     Route: 048
  8. CINACALCET [Concomitant]
     Active Substance: CINACALCET
     Route: 048
  9. CALCITRIOL. [Concomitant]
     Active Substance: CALCITRIOL
  10. MIRALAX [Concomitant]
     Active Substance: POLYETHYLENE GLYCOL 3350
     Indication: CONSTIPATION
     Route: 048
  11. TRAMADOL. [Concomitant]
     Active Substance: TRAMADOL
     Route: 048
  12. HYDROXYCHLOROQUINE [Concomitant]
     Active Substance: HYDROXYCHLOROQUINE
     Route: 048

REACTIONS (2)
  - Peritonitis bacterial [Recovered/Resolved]
  - Hypokalaemia [Recovering/Resolving]

NARRATIVE: CASE EVENT DATE: 201705
